FAERS Safety Report 9941605 (Version 2)
Quarter: 2014Q1

REPORT INFORMATION
  Report Type: Report from Study
  Country: US (occurrence: US)
  Receive Date: 20140303
  Receipt Date: 20140303
  Transmission Date: 20141002
  Serious: Yes (Other)
  Sender: FDA-Public Use
  Company Number: US-ABBVIE-13P-163-1037732-00

PATIENT
  Age: 73 Year
  Sex: Male

DRUGS (2)
  1. HUMIRA [Suspect]
     Indication: RHEUMATOID ARTHRITIS
     Route: 058
     Dates: end: 201208
  2. HUMIRA [Suspect]
     Route: 058
     Dates: start: 20130114

REACTIONS (3)
  - Cholecystitis infective [Recovered/Resolved]
  - Cholelithiasis [Recovered/Resolved]
  - Pruritus [Unknown]
